FAERS Safety Report 6540396-8 (Version None)
Quarter: 2010Q1

REPORT INFORMATION
  Report Type: 
  Country: None (occurrence: None)
  Receive Date: 20100113
  Receipt Date: 20100106
  Transmission Date: 20100710
  Serious: Yes (Other)
  Sender: FDA-Public Use
  Company Number: DSA_42300_2010

PATIENT
  Sex: Male

DRUGS (6)
  1. XENAZINE [Suspect]
     Indication: DYSTONIA
     Dosage: (12.5 MG TID ORAL)
     Route: 048
     Dates: start: 20091106
  2. CELEXA [Concomitant]
  3. ARTANE [Concomitant]
  4. LOPRESSOR [Concomitant]
  5. ASPIRIN [Concomitant]
  6. OXYBUTYNIN [Concomitant]

REACTIONS (3)
  - AMNESIA [None]
  - DEPRESSION [None]
  - PARANOIA [None]
